FAERS Safety Report 21498353 (Version 1)
Quarter: 2022Q4

REPORT INFORMATION
  Report Type: Spontaneous
  Country: US (occurrence: None)
  Receive Date: 20221021
  Receipt Date: 20221021
  Transmission Date: 20230113
  Serious: Yes (Hospitalization)
  Sender: FDA-Public Use
  Company Number: None

PATIENT
  Age: 83 Year
  Sex: Male

DRUGS (14)
  1. ABIRATERONE [Suspect]
     Active Substance: ABIRATERONE
     Indication: Prostate cancer
     Dosage: 1000MG ONCE DAILY ORAL
     Route: 048
     Dates: start: 20221013, end: 20221018
  2. PREDNISONE [Suspect]
     Active Substance: PREDNISONE
     Indication: Prostate cancer
     Dosage: 5MG ONCE DAILY ORAL
     Route: 048
     Dates: start: 20221013, end: 20221018
  3. AMLODIPINE [Concomitant]
     Active Substance: AMLODIPINE BESYLATE
  4. APRICOT [Concomitant]
     Active Substance: APRICOT
  5. BENAZEPRIL [Concomitant]
     Active Substance: BENAZEPRIL HYDROCHLORIDE
  6. FIRMAGON [Concomitant]
     Active Substance: DEGARELIX ACETATE
  7. IRON [Concomitant]
     Active Substance: IRON
  8. LASIX [Concomitant]
     Active Substance: FUROSEMIDE
  9. LOVASTATIN [Concomitant]
     Active Substance: LOVASTATIN
  10. LUPRON [Concomitant]
     Active Substance: LEUPROLIDE ACETATE
  11. METOPROLOL [Concomitant]
     Active Substance: METOPROLOL
  12. TAMSULOSIN [Concomitant]
     Active Substance: TAMSULOSIN
  13. VITAMIN B COMPLEX [Concomitant]
     Active Substance: CYANOCOBALAMIN\DEXPANTHENOL\NIACINAMIDE\PYRIDOXINE HYDROCHLORIDE\RIBOFLAVIN 5^-PHOSPHATE SODIUM\THIA
  14. WARFARIN [Concomitant]
     Active Substance: WARFARIN

REACTIONS (5)
  - Diarrhoea [None]
  - Fall [None]
  - Hypotension [None]
  - Infection [None]
  - Therapy interrupted [None]
